FAERS Safety Report 4426105-7 (Version None)
Quarter: 2004Q3

REPORT INFORMATION
  Report Type: 
  Country: None (occurrence: None)
  Receive Date: 20040811
  Receipt Date: 20040727
  Transmission Date: 20050211
  Serious: Yes (Death)
  Sender: FDA-Public Use
  Company Number: 2004225498FR

PATIENT
  Age: 36 Year
  Sex: Male

DRUGS (6)
  1. DEPO-TESTOSTERONE [Suspect]
  2. METENOLONE (METENOLONE) [Suspect]
  3. STANOZOLOL (STANOZOLOL) [Suspect]
  4. TESTOSTERON (TESTOSTERONE PROPIONATE) [Concomitant]
  5. TESTERONE ENANATE (TESTOSTERONE ENANTATE) [Suspect]
  6. NANDROLONE (NANDROLONE) [Suspect]

REACTIONS (4)
  - BRAIN OEDEMA [None]
  - CARDIOMEGALY [None]
  - DRUG ABUSER [None]
  - MYOCARDIAL INFARCTION [None]
